FAERS Safety Report 9977867 (Version 2)
Quarter: 2014Q1

REPORT INFORMATION
  Report Type: Report from Study
  Country: US (occurrence: US)
  Receive Date: 20140306
  Receipt Date: 20140306
  Transmission Date: 20141002
  Serious: Yes (Hospitalization, Other)
  Sender: FDA-Public Use
  Company Number: US-ABBVIE-12P-163-0948453-00

PATIENT
  Age: 64 Year
  Sex: Female
  Weight: 89.89 kg

DRUGS (23)
  1. HUMIRA [Suspect]
     Indication: ANKYLOSING SPONDYLITIS
     Dates: start: 20100126, end: 20120613
  2. HUMIRA [Suspect]
     Indication: RHEUMATOID ARTHRITIS
  3. CENESTIN [Suspect]
     Indication: HORMONE REPLACEMENT THERAPY
     Dates: start: 1984, end: 201205
  4. METHOTREXATE [Concomitant]
     Indication: ANKYLOSING SPONDYLITIS
  5. METHOTREXATE [Concomitant]
     Indication: RHEUMATOID ARTHRITIS
  6. ATENOLOL [Concomitant]
     Indication: HYPERTENSION
  7. ALTACE [Concomitant]
     Indication: HYPERTENSION
  8. LIPITOR [Concomitant]
     Indication: BLOOD CHOLESTEROL INCREASED
  9. VALIUM [Concomitant]
     Indication: INSOMNIA
  10. WELLBUTRIN [Concomitant]
     Indication: DEPRESSION
  11. CHLORZOXAZONE [Concomitant]
     Indication: GASTRITIS
  12. CHLORZOXAZONE [Concomitant]
     Indication: ABDOMINAL PAIN UPPER
  13. LANSOPRAZOLE [Concomitant]
     Indication: GASTRIC DISORDER
  14. LANSOPRAZOLE [Concomitant]
     Indication: PROPHYLAXIS
  15. HYDROXYCHLOROQUINE [Concomitant]
     Indication: RHEUMATOID ARTHRITIS
  16. HYDROXYCHLOROQUINE [Concomitant]
     Indication: ANKYLOSING SPONDYLITIS
  17. ADVAIR [Concomitant]
     Indication: ASTHMA
  18. ADDERALL [Concomitant]
     Indication: ATTENTION DEFICIT/HYPERACTIVITY DISORDER
  19. CYCLOBENZAPRINE [Concomitant]
     Indication: MUSCLE SPASMS
  20. PREDNISONE [Concomitant]
     Indication: RHEUMATOID ARTHRITIS
  21. PREDNISONE [Concomitant]
     Indication: ANKYLOSING SPONDYLITIS
  22. VOLTAREN [Concomitant]
     Indication: PAIN
     Route: 061
  23. PENNSAID [Concomitant]
     Indication: PAIN
     Route: 061

REACTIONS (12)
  - Thrombosis [Recovered/Resolved]
  - Gastritis [Recovered/Resolved]
  - Cold sweat [Recovered/Resolved]
  - Fatigue [Recovered/Resolved]
  - Dyspnoea [Recovered/Resolved]
  - Anxiety [Recovered/Resolved]
  - Rheumatoid arthritis [Not Recovered/Not Resolved]
  - Ankylosing spondylitis [Not Recovered/Not Resolved]
  - Influenza like illness [Not Recovered/Not Resolved]
  - Drug administration error [Not Recovered/Not Resolved]
  - Device malfunction [Not Recovered/Not Resolved]
  - Drug dose omission [Not Recovered/Not Resolved]
